FAERS Safety Report 10029086 (Version 2)
Quarter: 2014Q1

REPORT INFORMATION
  Report Type: Report from Study
  Country: US (occurrence: US)
  Receive Date: 20140321
  Receipt Date: 20140321
  Transmission Date: 20141002
  Serious: Yes (Hospitalization)
  Sender: FDA-Public Use
  Company Number: US-ABBVIE-12P-163-1019845-00

PATIENT
  Age: 59 Year
  Sex: Male
  Weight: 81.72 kg

DRUGS (5)
  1. HUMIRA [Suspect]
     Indication: PSORIASIS
     Route: 058
     Dates: start: 200805
  2. HUMIRA [Suspect]
     Route: 058
     Dates: start: 20120229, end: 20120810
  3. HUMIRA [Suspect]
     Route: 058
     Dates: start: 20121226
  4. LOSARTAN [Concomitant]
     Indication: HYPERTENSION
     Dates: start: 201012
  5. JANUMET [Concomitant]
     Indication: DIABETES MELLITUS
     Dates: start: 2000

REACTIONS (2)
  - Pharyngitis streptococcal [Recovered/Resolved]
  - Streptococcal bacteraemia [Recovered/Resolved]
